APPROVED DRUG PRODUCT: PREZCOBIX
Active Ingredient: COBICISTAT; DARUNAVIR ETHANOLATE
Strength: 150MG;EQ 675MG BASE
Dosage Form/Route: TABLET;ORAL
Application: N205395 | Product #002
Applicant: JANSSEN PRODUCTS LP
Approved: Mar 21, 2025 | RLD: Yes | RS: No | Type: RX

PATENTS:
Patent 8148374 | Expires: Sep 3, 2029
Patent 10039718 | Expires: Oct 6, 2032
Patent 7700645 | Expires: Dec 26, 2026
Patent 7700645*PED | Expires: Jun 26, 2027